FAERS Safety Report 10032180 (Version 1)
Quarter: 2014Q1

REPORT INFORMATION
  Report Type: Spontaneous
  Country: GB (occurrence: GB)
  Receive Date: 20140324
  Receipt Date: 20140324
  Transmission Date: 20141002
  Serious: Yes (Hospitalization)
  Sender: FDA-Public Use
  Company Number: PHHY2014GB034599

PATIENT
  Age: 79 Year
  Sex: Female
  Weight: 40.1 kg

DRUGS (2)
  1. STALEVO [Suspect]
     Indication: PARKINSON^S DISEASE
     Dosage: 1 DF (200/50/12.5MG), DAILY
     Route: 048
     Dates: start: 20140211, end: 20140218
  2. FLUDROCORTISONE [Concomitant]
     Dosage: UNK

REACTIONS (2)
  - General physical health deterioration [Not Recovered/Not Resolved]
  - Hypoventilation [Not Recovered/Not Resolved]
